FAERS Safety Report 13512249 (Version 4)
Quarter: 2017Q3

REPORT INFORMATION
  Report Type: Spontaneous
  Country: NZ (occurrence: NZ)
  Receive Date: 20170504
  Receipt Date: 20170712
  Transmission Date: 20171127
  Serious: Yes (Hospitalization, Other)
  Sender: FDA-Public Use
  Company Number: NZ-JNJFOC-20170429403

PATIENT
  Age: 11 Year
  Sex: Female
  Weight: 50.25 kg

DRUGS (8)
  1. REMICADE [Suspect]
     Active Substance: INFLIXIMAB
     Indication: CROHN^S DISEASE
     Route: 042
     Dates: end: 20170316
  2. REMICADE [Suspect]
     Active Substance: INFLIXIMAB
     Indication: CROHN^S DISEASE
     Route: 042
     Dates: start: 2016
  3. REMICADE [Suspect]
     Active Substance: INFLIXIMAB
     Indication: CROHN^S DISEASE
     Dosage: 4TH INFUSION
     Route: 042
  4. AZATHIOPRINE. [Concomitant]
     Active Substance: AZATHIOPRINE
     Route: 048
     Dates: start: 201407
  5. REMICADE [Suspect]
     Active Substance: INFLIXIMAB
     Indication: CROHN^S DISEASE
     Dosage: INDUCTION STARTED 11-MAR2015, THEN 8 WEEKLY MAINTENANCE, DOSE??TARTED AT THE AGE OF 9 YEARS
     Route: 042
     Dates: start: 20150311
  6. PENTASA [Concomitant]
     Active Substance: MESALAMINE
     Route: 048
     Dates: start: 201409
  7. REMICADE [Suspect]
     Active Substance: INFLIXIMAB
     Indication: CROHN^S DISEASE
     Route: 042
  8. PENTASA [Concomitant]
     Active Substance: MESALAMINE
     Route: 048
     Dates: start: 201702

REACTIONS (8)
  - Off label use [Unknown]
  - Drug effect decreased [Not Recovered/Not Resolved]
  - Product use issue [Unknown]
  - Gastritis [Unknown]
  - Crohn^s disease [Not Recovered/Not Resolved]
  - Anal fissure [Unknown]
  - Drug level below therapeutic [Not Recovered/Not Resolved]
  - Pain [Unknown]

NARRATIVE: CASE EVENT DATE: 2016
